FAERS Safety Report 7291829-3 (Version None)
Quarter: 2011Q1

REPORT INFORMATION
  Report Type: 
  Country: None (occurrence: None)
  Receive Date: 20110214
  Receipt Date: 20110210
  Transmission Date: 20110831
  Serious: Yes (Other)
  Sender: FDA-Public Use
  Company Number: US-PFIZER INC-2010139593

PATIENT
  Sex: Female
  Weight: 82 kg

DRUGS (18)
  1. VITAMIN B-12 [Concomitant]
     Dosage: UNK, WEEKLY
  2. ACETYLSALICYLIC ACID [Concomitant]
     Indication: HYPERTENSION
     Dosage: 81 MG, 1X/DAY
  3. CLONIDINE [Concomitant]
     Dosage: 0.1 MG, 1X/DAY
  4. CHANTIX [Suspect]
     Dosage: 1 MG, 2X/DAY
     Route: 048
     Dates: start: 20101001, end: 20101029
  5. PLAVIX [Concomitant]
     Dosage: 75 MG, 1X/DAY
  6. CALCIUM WITH VITAMIN D [Concomitant]
     Dosage: 600 MG, 1X/DAY
  7. CYMBALTA [Concomitant]
     Indication: DEPRESSION
     Dosage: 30 MG, 2AM AND 1 HS
  8. TOPROL-XL [Concomitant]
     Indication: HYPERTENSION
     Dosage: 50 MG, 1X/DAY
  9. CYMBALTA [Concomitant]
     Dosage: UNK
  10. ISOSORBIDE [Concomitant]
     Indication: HYPERTENSION
     Dosage: 10 MG, 1X/DAY
  11. NITROGLYCERIN [Concomitant]
     Indication: CHEST PAIN
     Dosage: 0.5 MG, UNK
  12. SOMA [Concomitant]
     Indication: MUSCLE SPASMS
     Dosage: 350 MG, Q4H AS NEEDED
  13. CHANTIX [Suspect]
     Indication: SMOKING CESSATION THERAPY
     Dosage: 0.5 MG, 1X/DAY
     Dates: start: 20101001, end: 20101001
  14. ALPRAZOLAM [Concomitant]
     Indication: ANXIETY
     Dosage: 2 MG, 2X/DAY
  15. NEXIUM [Concomitant]
     Dosage: 40 MG, 1X/DAY
  16. AMLODIPINE BESYLATE AND BENAZEPRIL HCL [Concomitant]
     Dosage: 5/10 MG, DAILY
  17. SEREVENT [Concomitant]
     Indication: CHRONIC OBSTRUCTIVE PULMONARY DISEASE
     Dosage: 50 MG, 2X/DAY
  18. ACTONEL [Concomitant]
     Dosage: 150 MG, MONTHLY

REACTIONS (5)
  - BACK INJURY [None]
  - DEPRESSION [None]
  - ABNORMAL DREAMS [None]
  - GLUCOSE TOLERANCE IMPAIRED [None]
  - SUICIDAL IDEATION [None]
